FAERS Safety Report 12736852 (Version 1)
Quarter: 2016Q3

REPORT INFORMATION
  Report Type: Spontaneous
  Country: US (occurrence: US)
  Receive Date: 20160912
  Receipt Date: 20160912
  Transmission Date: 20161109
  Serious: No
  Sender: FDA-Public Use
  Company Number: US-PFIZER INC-2016422304

PATIENT
  Sex: Female

DRUGS (1)
  1. CHANTIX [Suspect]
     Active Substance: VARENICLINE TARTRATE
     Dosage: 1 DF, 1X/DAY
     Dates: start: 20160901

REACTIONS (2)
  - Inappropriate schedule of drug administration [Unknown]
  - Increased appetite [Unknown]

NARRATIVE: CASE EVENT DATE: 201609
